FAERS Safety Report 10580487 (Version 2)
Quarter: 2014Q4

REPORT INFORMATION
  Report Type: Spontaneous
  Country: AU (occurrence: AU)
  Receive Date: 20141113
  Receipt Date: 20141119
  Transmission Date: 20150529
  Serious: Yes (Other)
  Sender: FDA-Public Use
  Company Number: AU-AUROBINDO-AUR-APL-2014-11809

PATIENT
  Age: 23 Year
  Sex: Male

DRUGS (1)
  1. SERTRALINE [Suspect]
     Active Substance: SERTRALINE HYDROCHLORIDE
     Indication: PRODUCT USED FOR UNKNOWN INDICATION
     Dosage: 50 MG, DAILY
     Route: 065

REACTIONS (6)
  - Retinal depigmentation [Not Recovered/Not Resolved]
  - Toxicity to various agents [Unknown]
  - Maculopathy [Unknown]
  - Retinal injury [Unknown]
  - Metamorphopsia [Unknown]
  - Vision blurred [Recovering/Resolving]
